FAERS Safety Report 11596508 (Version 1)
Quarter: 2015Q4

REPORT INFORMATION
  Report Type: Report from Study
  Country: US (occurrence: US)
  Receive Date: 20151006
  Receipt Date: 20151006
  Transmission Date: 20160304
  Serious: No
  Sender: FDA-Public Use
  Company Number: US-ALEXION-A201503734

PATIENT

DRUGS (1)
  1. SOLIRIS [Suspect]
     Active Substance: ECULIZUMAB
     Indication: HAEMOLYTIC URAEMIC SYNDROME
     Dosage: UNK
     Route: 042

REACTIONS (6)
  - Vomiting [Unknown]
  - Pyrexia [Unknown]
  - Back pain [Unknown]
  - Abdominal pain upper [Unknown]
  - Fistula [Unknown]
  - Headache [Unknown]

NARRATIVE: CASE EVENT DATE: 20150902
